FAERS Safety Report 6292677-3 (Version None)
Quarter: 2009Q3

REPORT INFORMATION
  Report Type: 
  Country: None (occurrence: None)
  Receive Date: 20090731
  Receipt Date: 20090727
  Transmission Date: 20100115
  Serious: No
  Sender: FDA-Public Use
  Company Number: B0586004A

PATIENT
  Age: 18 Year
  Sex: Female

DRUGS (2)
  1. RELENZA [Suspect]
     Indication: INFLUENZA
     Dosage: 10MG TWICE PER DAY
     Route: 055
     Dates: start: 20090723, end: 20090728
  2. CALONAL [Concomitant]
     Route: 048

REACTIONS (2)
  - NO ADVERSE EVENT [None]
  - OVERDOSE [None]
